FAERS Safety Report 23447658 (Version 4)
Quarter: 2024Q1

REPORT INFORMATION
  Report Type: Spontaneous
  Country: US (occurrence: US)
  Receive Date: 20240126
  Receipt Date: 20240327
  Transmission Date: 20240410
  Serious: No
  Sender: FDA-Public Use
  Company Number: US-PFIZER INC-202400022707

PATIENT
  Age: 64 Year
  Sex: Female
  Weight: 65.77 kg

DRUGS (1)
  1. PAXLOVID [Suspect]
     Active Substance: NIRMATRELVIR\RITONAVIR
     Indication: COVID-19 treatment
     Dosage: UNK
     Dates: start: 20240113, end: 20240118

REACTIONS (8)
  - COVID-19 [Recovering/Resolving]
  - Disease recurrence [Recovering/Resolving]
  - Dysgeusia [Unknown]
  - Sinusitis [Not Recovered/Not Resolved]
  - Sinus disorder [Not Recovered/Not Resolved]
  - Nasal congestion [Recovering/Resolving]
  - Nasal dryness [Recovering/Resolving]
  - Insomnia [Recovered/Resolved]

NARRATIVE: CASE EVENT DATE: 20240115
